FAERS Safety Report 16491622 (Version 1)
Quarter: 2019Q2

REPORT INFORMATION
  Report Type: Spontaneous
  Country: US (occurrence: US)
  Receive Date: 20190628
  Receipt Date: 20190628
  Transmission Date: 20190711
  Serious: No
  Sender: FDA-Public Use
  Company Number: US-GLAXOSMITHKLINE-US2019AMR113836

PATIENT
  Sex: Male

DRUGS (2)
  1. NUCALA [Suspect]
     Active Substance: MEPOLIZUMAB
     Indication: ASPIRIN-EXACERBATED RESPIRATORY DISEASE
     Dosage: UNK
     Route: 065
     Dates: start: 20161001
  2. NUCALA [Suspect]
     Active Substance: MEPOLIZUMAB
     Indication: ASTHMA

REACTIONS (8)
  - Secretion discharge [Unknown]
  - Dyspnoea [Unknown]
  - Ear discomfort [Unknown]
  - Eustachian tube dysfunction [Unknown]
  - Multiple allergies [Unknown]
  - Myringotomy [Unknown]
  - Surgery [Unknown]
  - Cough [Unknown]
